FAERS Safety Report 8027768-X (Version None)
Quarter: 2012Q1

REPORT INFORMATION
  Report Type: 
  Country: None (occurrence: None)
  Receive Date: 20120106
  Receipt Date: 20120106
  Transmission Date: 20120608
  Serious: No
  Sender: FDA-Public Use
  Company Number: None

PATIENT
  Age: 7 Year
  Sex: Male
  Weight: 23.133 kg

DRUGS (1)
  1. RITALIN [Suspect]

REACTIONS (1)
  - GRANULOMA ANNULARE [None]
